FAERS Safety Report 8218367-5 (Version None)
Quarter: 2012Q1

REPORT INFORMATION
  Report Type: 
  Country: None (occurrence: None)
  Receive Date: 20120319
  Receipt Date: 20120315
  Transmission Date: 20120608
  Serious: Yes (Hospitalization)
  Sender: FDA-Public Use
  Company Number: US-GLAXOSMITHKLINE-A0959891A

PATIENT
  Age: 63 Year
  Sex: Male
  Weight: 70.9 kg

DRUGS (5)
  1. GLUCOVANCE [Concomitant]
  2. PAXIL [Concomitant]
  3. LIPITOR [Concomitant]
  4. AVANDAMET [Suspect]
     Indication: DIABETES MELLITUS
     Route: 048
     Dates: start: 20051001, end: 20051101
  5. AVANDIA [Suspect]
     Indication: DIABETES MELLITUS
     Route: 048
     Dates: start: 20020901

REACTIONS (9)
  - CARDIAC FAILURE [None]
  - CARDIAC FAILURE CONGESTIVE [None]
  - LEFT VENTRICULAR DYSFUNCTION [None]
  - MYOCARDIAL ISCHAEMIA [None]
  - ACUTE MYOCARDIAL INFARCTION [None]
  - CORONARY ARTERY DISEASE [None]
  - CARDIOMYOPATHY [None]
  - ANGINA UNSTABLE [None]
  - RENAL FAILURE ACUTE [None]
